FAERS Safety Report 6008472-6 (Version None)
Quarter: 2008Q4

REPORT INFORMATION
  Report Type: 
  Country: None (occurrence: None)
  Receive Date: 20081217
  Receipt Date: 20081202
  Transmission Date: 20090506
  Serious: Yes (Hospitalization, Other)
  Sender: FDA-Public Use
  Company Number: NL-GENENTECH-272359

PATIENT

DRUGS (2)
  1. LUCENTIS [Suspect]
     Indication: MACULAR DEGENERATION
     Dosage: 0.05 MG, UNK
     Route: 031
     Dates: start: 20080701
  2. COVERSYL [Concomitant]
     Indication: HYPERTENSION

REACTIONS (1)
  - AORTIC ANEURYSM [None]
